FAERS Safety Report 6674544-6 (Version None)
Quarter: 2010Q2

REPORT INFORMATION
  Report Type: 
  Country: None (occurrence: None)
  Receive Date: 20100409
  Receipt Date: 20100331
  Transmission Date: 20101027
  Serious: Yes (Hospitalization)
  Sender: FDA-Public Use
  Company Number: PHHY2010US10220

PATIENT
  Sex: Female
  Weight: 40.816 kg

DRUGS (27)
  1. TEKTURNA [Suspect]
     Route: 065
  2. NAMENDA [Suspect]
  3. ARICEPT [Suspect]
     Dosage: 10 MG
  4. NAMOXDIL [Suspect]
  5. PLAVIX [Suspect]
     Dosage: 75 MG
  6. PROCARDIA [Suspect]
     Dosage: 60 MG
  7. CELEBREX [Suspect]
     Dosage: 100 MG
  8. POTONIX [Suspect]
  9. MEGESTROL ACETATE [Suspect]
  10. COANADIN [Suspect]
  11. FOLIC ACID [Suspect]
     Dosage: 1 MG
  12. AYESURBY [Suspect]
     Dosage: UNK
  13. ZOCOR [Suspect]
     Dosage: 20 MG
  14. VITAMIN B COMPLEX TAB [Suspect]
  15. VITAMIN C [Suspect]
  16. INSULIN [Suspect]
  17. CLONIDINE HYDROCHLORIDE [Suspect]
     Dosage: 0.2 MG
  18. LASIX [Suspect]
     Dosage: 40 MG
  19. MIRTAZAPINE [Suspect]
     Dosage: 15 MG
  20. NEPHRO-VITE [Suspect]
  21. MINOXIDIL [Suspect]
     Dosage: 2.5 MG
  22. ISORBIDE [Suspect]
     Dosage: 60 MG
  23. FAMOTIDINE [Suspect]
     Dosage: 20 MG
  24. HUMALOG [Suspect]
     Dosage: 100 IU
  25. LORAZEPAM [Suspect]
     Dosage: 0.5 MG, PRN
  26. LABETALOL HCL [Suspect]
     Dosage: 200 MG
  27. LANTUS [Suspect]

REACTIONS (7)
  - ASTHENIA [None]
  - CYSTITIS [None]
  - DIALYSIS [None]
  - HAEMORRHAGE [None]
  - INFLAMMATION [None]
  - MALAISE [None]
  - WEIGHT DECREASED [None]
